FAERS Safety Report 24667291 (Version 1)
Quarter: 2024Q4

REPORT INFORMATION
  Report Type: Spontaneous
  Country: GB (occurrence: GB)
  Receive Date: 20241126
  Receipt Date: 20241126
  Transmission Date: 20250115
  Serious: Yes (Other)
  Sender: BOEHRINGER INGELHEIM
  Company Number: GB-MHRA-TPP519296C6094905YC1732549635364

PATIENT
  Age: 51 Year
  Sex: Male
  Weight: 117 kg

DRUGS (12)
  1. EMPAGLIFLOZIN [Suspect]
     Active Substance: EMPAGLIFLOZIN
     Indication: Ill-defined disorder
     Dosage: FORM OF ADMIN:
     Route: 048
     Dates: start: 20241008, end: 20241125
  2. EMPAGLIFLOZIN [Suspect]
     Active Substance: EMPAGLIFLOZIN
     Dosage: FORM OF ADMIN:TPP
     Route: 048
     Dates: start: 20241125
  3. TRAMADOL [Concomitant]
     Active Substance: TRAMADOL
     Indication: Ill-defined disorder
     Dosage: TAKE 1 OR 2 EVERY 4-6 HRS?FORM OF ADMIN:TPP
     Dates: start: 20240910, end: 20240917
  4. RAMIPRIL [Concomitant]
     Active Substance: RAMIPRIL
     Indication: Ill-defined disorder
     Dosage: FORM OF ADMIN:TPP
     Dates: start: 20241108
  5. FLUTIFORM [Concomitant]
     Active Substance: FLUTIFORM
     Indication: Ill-defined disorder
     Dosage: FORM OF ADMIN:TPP
     Dates: start: 20230515
  6. TADALAFIL [Concomitant]
     Active Substance: TADALAFIL
     Indication: Ill-defined disorder
     Dosage: FORM OF ADMIN:TPP
     Dates: start: 20230515
  7. VENTOLIN [Concomitant]
     Active Substance: ALBUTEROL SULFATE
     Indication: Ill-defined disorder
     Dosage: INHALE 2 DOSES AS NEEDED?FORM OF ADMIN:TPP
     Dates: start: 20230515
  8. AMLODIPINE [Concomitant]
     Active Substance: AMLODIPINE BESYLATE
     Indication: Ill-defined disorder
     Dosage: FORM OF ADMIN:TPP
     Dates: start: 20230918
  9. INDAPAMIDE [Concomitant]
     Active Substance: INDAPAMIDE
     Indication: Ill-defined disorder
     Dosage: FORM OF ADMIN:TPP
     Dates: start: 20230918
  10. METFORMIN [Concomitant]
     Active Substance: METFORMIN HYDROCHLORIDE
     Indication: Ill-defined disorder
     Dosage: TAKE TWO TABLETS WITH EVENING MEAL?FORM OF ADMIN:TPP YC - PLEASE RECLASSIFY
     Dates: start: 20231211
  11. ATORVASTATIN [Concomitant]
     Active Substance: ATORVASTATIN
     Indication: Ill-defined disorder
     Dosage: FORM OF ADMIN:TPP
     Dates: start: 20240205
  12. TESTOSTERONE [Concomitant]
     Active Substance: TESTOSTERONE
     Indication: Ill-defined disorder
     Dosage: APPLY ONCE DAILY 1- 2 PUMPS FIRST THING IN THE ...?FORM OF ADMIN:TPP
     Dates: start: 20240205

REACTIONS (1)
  - Agitated depression [Recovered/Resolved]

NARRATIVE: CASE EVENT DATE: 20241008
